FAERS Safety Report 18810101 (Version 8)
Quarter: 2022Q2

REPORT INFORMATION
  Report Type: Report from Study
  Country: US (occurrence: US)
  Receive Date: 20210129
  Receipt Date: 20220422
  Transmission Date: 20220721
  Serious: Yes (Other)
  Sender: FDA-Public Use
  Company Number: US-NOVARTISPH-NVSC2021US021212

PATIENT
  Age: 51 Year
  Sex: Female

DRUGS (3)
  1. GILENYA [Suspect]
     Active Substance: FINGOLIMOD HYDROCHLORIDE
     Indication: Relapsing-remitting multiple sclerosis
     Dosage: 0.5 MG, QD
     Route: 048
  2. GILENYA [Suspect]
     Active Substance: FINGOLIMOD HYDROCHLORIDE
     Dosage: 0.5 MG, QD
     Route: 048
     Dates: start: 20201104
  3. GILENYA [Suspect]
     Active Substance: FINGOLIMOD HYDROCHLORIDE
     Dosage: 0.5 MG, QD
     Route: 048

REACTIONS (24)
  - Multiple sclerosis relapse [Unknown]
  - Guillain-Barre syndrome [Unknown]
  - Chronic inflammatory demyelinating polyradiculoneuropathy [Unknown]
  - Neuropathy peripheral [Unknown]
  - Seizure [Unknown]
  - Stress [Unknown]
  - Balance disorder [Unknown]
  - Speech disorder [Unknown]
  - Muscular weakness [Unknown]
  - Tremor [Unknown]
  - Muscle spasms [Unknown]
  - Malaise [Unknown]
  - Pain [Unknown]
  - Head discomfort [Unknown]
  - Temperature intolerance [Unknown]
  - Dizziness postural [Unknown]
  - Sensitivity to weather change [Unknown]
  - Confusional state [Unknown]
  - Lung disorder [Unknown]
  - Vitamin D decreased [Unknown]
  - Headache [Unknown]
  - Asthenia [Unknown]
  - Heart rate decreased [Unknown]
  - Fatigue [Unknown]

NARRATIVE: CASE EVENT DATE: 20220419
